FAERS Safety Report 4874402-3 (Version None)
Quarter: 2006Q1

REPORT INFORMATION
  Report Type: 
  Country: None (occurrence: None)
  Receive Date: 20060104
  Receipt Date: 20051220
  Transmission Date: 20060701
  Serious: Yes (Other)
  Sender: FDA-Public Use
  Company Number: 2005132643

PATIENT
  Age: 68 Year
  Sex: Female

DRUGS (9)
  1. NEURONTIN [Suspect]
     Indication: NEUROPATHY
     Dosage: 900 MG (300 MG, 3 IN 1 D),
     Dates: start: 20050701
  2. GABAPENTIN [Suspect]
     Indication: NEUROPATHY
     Dosage: 900 MG (300 MG, 3 IN 1 D),
     Dates: start: 20050101
  3. PROMETHAZINE [Concomitant]
  4. LOMOTIL [Concomitant]
  5. LOPRESSOR [Concomitant]
  6. HYDRALAZINE HCL [Concomitant]
  7. SYNTHROID [Concomitant]
  8. IMDUR [Concomitant]
  9. LASIX [Concomitant]

REACTIONS (6)
  - BALANCE DISORDER [None]
  - DRUG EFFECT DECREASED [None]
  - FEELING ABNORMAL [None]
  - MEDICAL DEVICE COMPLICATION [None]
  - VISION BLURRED [None]
  - VISUAL DISTURBANCE [None]
